FAERS Safety Report 4440335-X (Version None)
Quarter: 2004Q3

REPORT INFORMATION
  Report Type: 
  Country: None (occurrence: None)
  Receive Date: 20040831
  Receipt Date: 20040817
  Transmission Date: 20050211
  Serious: Yes (Hospitalization)
  Sender: FDA-Public Use
  Company Number: 800046

PATIENT
  Age: 47 Year
  Sex: Male
  Weight: 77.8 kg

DRUGS (9)
  1. EXTRANEAL [Suspect]
     Indication: PERITONEAL DIALYSIS
     Dosage: 1.5 L;QD; INTRAPERITONEAL
     Route: 033
     Dates: start: 20040620, end: 20040621
  2. DIANEAL [Concomitant]
  3. LASIX [Concomitant]
  4. LANDEL [Concomitant]
  5. CALCITRIOL [Concomitant]
  6. ACECOL [Concomitant]
  7. STARSIS [Concomitant]
  8. CALCIUM CARBONATE [Concomitant]
  9. MICARDIS [Concomitant]

REACTIONS (5)
  - ANOREXIA [None]
  - DIARRHOEA [None]
  - MALAISE [None]
  - NAUSEA [None]
  - VOMITING [None]
